FAERS Safety Report 13446540 (Version 1)
Quarter: 2017Q2

REPORT INFORMATION
  Report Type: Spontaneous
  Country: BE (occurrence: BE)
  Receive Date: 20170417
  Receipt Date: 20170417
  Transmission Date: 20170830
  Serious: Yes (Life-Threatening, Hospitalization, Other)
  Sender: FDA-Public Use
  Company Number: BE-LUPIN PHARMACEUTICALS INC.-2017-01778

PATIENT
  Age: 76 Year
  Sex: Female

DRUGS (2)
  1. CEFTRIAXONE. [Suspect]
     Active Substance: CEFTRIAXONE
     Dosage: 4 G, TWICE A WEEK
     Route: 042
  2. CEFTRIAXONE. [Suspect]
     Active Substance: CEFTRIAXONE
     Indication: LYME DISEASE
     Dosage: 4 G, TWICE A WEEK
     Route: 042

REACTIONS (2)
  - Acute kidney injury [Recovering/Resolving]
  - Haemolytic anaemia [Recovering/Resolving]
